FAERS Safety Report 9267242 (Version 2)
Quarter: 2013Q2

REPORT INFORMATION
  Report Type: Spontaneous
  Country: US (occurrence: US)
  Receive Date: 20130502
  Receipt Date: 20130617
  Transmission Date: 20140414
  Serious: Yes (Hospitalization)
  Sender: FDA-Public Use
  Company Number: US-ABBOTT-13P-163-1080734-00

PATIENT
  Age: 42 Year
  Sex: Female
  Weight: 94.43 kg

DRUGS (3)
  1. HUMIRA [Suspect]
     Indication: PSORIASIS
     Dates: start: 2008, end: 20120321
  2. ATENOLOL [Concomitant]
     Indication: PRODUCT USED FOR UNKNOWN INDICATION
  3. MULTIVITAMIN [Concomitant]
     Indication: PRODUCT USED FOR UNKNOWN INDICATION

REACTIONS (4)
  - Bone marrow failure [Not Recovered/Not Resolved]
  - Bacterial food poisoning [Recovered/Resolved]
  - Anaemia [Not Recovered/Not Resolved]
  - Blood potassium decreased [Unknown]
